FAERS Safety Report 4718144-3 (Version None)
Quarter: 2005Q3

REPORT INFORMATION
  Report Type: 
  Country: None (occurrence: None)
  Receive Date: 20050718
  Receipt Date: 20050427
  Transmission Date: 20060218
  Serious: No
  Sender: FDA-Public Use
  Company Number: 2005000805

PATIENT
  Age: 78 Year
  Sex: Female
  Weight: 56.246 kg

DRUGS (11)
  1. TARCEVA [Suspect]
     Indication: NON-SMALL CELL LUNG CANCER
     Dosage: 100 MG (QD), ORAL
     Route: 048
     Dates: start: 20050408, end: 20050427
  2. TARCEVA [Suspect]
     Indication: NON-SMALL CELL LUNG CANCER
     Dosage: 100 MG (QD), ORAL
     Route: 048
     Dates: start: 20050101
  3. LASIX [Concomitant]
  4. POTASSIUM (POTASSIUM) [Concomitant]
  5. OXYGEN (OXYGEN) [Concomitant]
  6. PREDNISONE (PERDNISONE) [Concomitant]
  7. PERCOCET [Concomitant]
  8. KADIAN [Concomitant]
  9. ZOLOFT [Concomitant]
  10. COSOPT (COSOPT) [Concomitant]
  11. PROTONIX [Concomitant]

REACTIONS (7)
  - ASTHENIA [None]
  - DECREASED APPETITE [None]
  - DEHYDRATION [None]
  - DIARRHOEA [None]
  - URINARY TRACT INFECTION [None]
  - VOMITING [None]
  - WEIGHT DECREASED [None]
